FAERS Safety Report 12386104 (Version 1)
Quarter: 2016Q2

REPORT INFORMATION
  Report Type: Spontaneous
  Country: FR (occurrence: FR)
  Receive Date: 20160519
  Receipt Date: 20160519
  Transmission Date: 20160815
  Serious: Yes (Other)
  Sender: FDA-Public Use
  Company Number: FR-ASTRAZENECA-2015SE89361

PATIENT
  Age: 28874 Day
  Sex: Male
  Weight: 61 kg

DRUGS (12)
  1. METFORMIN [Concomitant]
     Active Substance: METFORMIN HYDROCHLORIDE
  2. PRADAXA [Concomitant]
     Active Substance: DABIGATRAN ETEXILATE MESYLATE
  3. XEROQUEL [Suspect]
     Active Substance: QUETIAPINE FUMARATE
     Indication: INTRUSIVE THOUGHTS
     Route: 048
  4. ATORVASTATIN [Concomitant]
     Active Substance: ATORVASTATIN
  5. XEROQUEL [Suspect]
     Active Substance: QUETIAPINE FUMARATE
     Indication: INTRUSIVE THOUGHTS
     Route: 048
     Dates: start: 20150911
  6. RAMIPRIL. [Concomitant]
     Active Substance: RAMIPRIL
  7. XEROQUEL [Suspect]
     Active Substance: QUETIAPINE FUMARATE
     Indication: INTRUSIVE THOUGHTS
     Route: 048
     Dates: start: 20150911
  8. XEROQUEL [Suspect]
     Active Substance: QUETIAPINE FUMARATE
     Indication: INTRUSIVE THOUGHTS
     Route: 048
     Dates: start: 20150729, end: 20150812
  9. BISOPROLOL [Concomitant]
     Active Substance: BISOPROLOL
  10. FUROSEMIDE. [Concomitant]
     Active Substance: FUROSEMIDE
  11. XEROQUEL [Suspect]
     Active Substance: QUETIAPINE FUMARATE
     Indication: INTRUSIVE THOUGHTS
     Route: 048
     Dates: start: 20150812, end: 20150909
  12. XEROQUEL [Suspect]
     Active Substance: QUETIAPINE FUMARATE
     Indication: INTRUSIVE THOUGHTS
     Route: 048
     Dates: start: 201509

REACTIONS (5)
  - Disinhibition [Recovered/Resolved]
  - Bradykinesia [Recovered/Resolved]
  - Off label use [Recovered/Resolved]
  - Sedation [Recovered/Resolved]
  - Incoherent [Recovered/Resolved]

NARRATIVE: CASE EVENT DATE: 20150910
